FAERS Safety Report 24448248 (Version 1)
Quarter: 2024Q4

REPORT INFORMATION
  Report Type: Spontaneous
  Country: US (occurrence: US)
  Receive Date: 20241017
  Receipt Date: 20241017
  Transmission Date: 20250115
  Serious: Yes (Hospitalization)
  Sender: JOHNSON AND JOHNSON
  Company Number: US-JNJFOC-20241035767

PATIENT
  Sex: Female

DRUGS (2)
  1. XARELTO [Suspect]
     Active Substance: RIVAROXABAN
     Indication: Product used for unknown indication
     Dosage: PURCHASED FROM USA
     Route: 048
     Dates: start: 202406
  2. XARELTO [Suspect]
     Active Substance: RIVAROXABAN
     Dosage: PURCHASED FROM MEXICO
     Route: 048
     Dates: start: 2024

REACTIONS (2)
  - Pulmonary embolism [Unknown]
  - Treatment failure [Unknown]

NARRATIVE: CASE EVENT DATE: 20241009
